FAERS Safety Report 5731099-8 (Version None)
Quarter: 2008Q2

REPORT INFORMATION
  Report Type: 
  Country: None (occurrence: None)
  Receive Date: 20080507
  Receipt Date: 20080501
  Transmission Date: 20081010
  Serious: Yes (Other)
  Sender: FDA-Public Use
  Company Number: GB-ALLERGAN-0805260US

PATIENT
  Sex: Female

DRUGS (5)
  1. EXOCIN [Suspect]
     Indication: KERATITIS
     Dosage: UNK, QID
     Route: 047
  2. PREDNISOLONE ACETATE [Suspect]
     Indication: KERATITIS
     Dosage: UNK, BID
     Route: 047
  3. TIMOLOL MALEATE [Suspect]
     Indication: KERATITIS
     Dosage: UNK, BID
     Route: 047
  4. CEFUROXIME [Suspect]
     Indication: KERATITIS
     Dosage: UNK, QID
     Route: 047
  5. PREDNISOLONE [Concomitant]
     Indication: KERATITIS
     Dosage: 5 MG, QD
     Route: 048

REACTIONS (2)
  - CORNEAL DEPOSITS [None]
  - ULCERATIVE KERATITIS [None]
